FAERS Safety Report 10039638 (Version 1)
Quarter: 2014Q1

REPORT INFORMATION
  Report Type: Spontaneous
  Country: NL (occurrence: NL)
  Receive Date: 20140326
  Receipt Date: 20140326
  Transmission Date: 20141002
  Serious: Yes (Other)
  Sender: FDA-Public Use
  Company Number: PHHY2014NL035346

PATIENT
  Sex: Female
  Weight: 84.5 kg

DRUGS (1)
  1. CO-TRIMOXAZOL [Suspect]
     Indication: BACTERIAL INFECTION
     Dosage: 960 MG, UNK
     Route: 048
     Dates: start: 20140311

REACTIONS (5)
  - Hypertension [Unknown]
  - Agitation [Unknown]
  - Cold sweat [Unknown]
  - Hypoaesthesia [Unknown]
  - Paraesthesia [Unknown]
